FAERS Safety Report 10901535 (Version 1)
Quarter: 2015Q1

REPORT INFORMATION
  Report Type: Spontaneous
  Country: US (occurrence: None)
  Receive Date: 20150303
  Receipt Date: 20150303
  Transmission Date: 20150721
  Serious: Yes (Other)
  Sender: FDA-Public Use
  Company Number: None

PATIENT
  Age: 21 Year
  Sex: Female
  Weight: 50.3 kg

DRUGS (1)
  1. PAZOPANIB [Suspect]
     Active Substance: PAZOPANIB
     Indication: FIBROMATOSIS
     Dosage: MG
     Route: 048
     Dates: start: 20141219, end: 20150112

REACTIONS (2)
  - Liver function test abnormal [None]
  - Hepatotoxicity [None]

NARRATIVE: CASE EVENT DATE: 20150112
